FAERS Safety Report 19469835 (Version 1)
Quarter: 2021Q2

REPORT INFORMATION
  Report Type: Spontaneous
  Country: IN (occurrence: IN)
  Receive Date: 20210628
  Receipt Date: 20210628
  Transmission Date: 20210717
  Serious: Yes (Death, Other)
  Sender: FDA-Public Use
  Company Number: IN-UCBSA-2021030434

PATIENT
  Age: 15 Month
  Sex: Male

DRUGS (3)
  1. LEVETIRACETAM. [Suspect]
     Active Substance: LEVETIRACETAM
     Indication: ACUTE DISSEMINATED ENCEPHALOMYELITIS
     Dosage: UNKNOWN DOSE
  2. METHYLPREDNISOLONE. [Concomitant]
     Active Substance: METHYLPREDNISOLONE
     Indication: ACUTE DISSEMINATED ENCEPHALOMYELITIS
     Dosage: UNKNOWN DOSE
  3. HALOPERIDOL. [Concomitant]
     Active Substance: HALOPERIDOL
     Indication: ACUTE DISSEMINATED ENCEPHALOMYELITIS
     Dosage: UNKNOWN DOSE

REACTIONS (4)
  - Subacute sclerosing panencephalitis [Fatal]
  - Product use in unapproved indication [Unknown]
  - Dystonia [Unknown]
  - Choreoathetosis [Unknown]
